FAERS Safety Report 15640004 (Version 1)
Quarter: 2018Q4

REPORT INFORMATION
  Report Type: Report from Study
  Country: BR (occurrence: BR)
  Receive Date: 20181120
  Receipt Date: 20181120
  Transmission Date: 20190205
  Serious: Yes (Other)
  Sender: FDA-Public Use
  Company Number: PHHY2018BR137567

PATIENT
  Age: 51 Year
  Sex: Female
  Weight: 74 kg

DRUGS (1)
  1. COSENTYX [Suspect]
     Active Substance: SECUKINUMAB
     Indication: PSORIATIC ARTHROPATHY
     Dosage: 300 MG, QW
     Route: 058
     Dates: start: 20180831

REACTIONS (14)
  - External ear inflammation [Not Recovered/Not Resolved]
  - Wound [Not Recovered/Not Resolved]
  - Emotional distress [Not Recovered/Not Resolved]
  - Ear swelling [Not Recovered/Not Resolved]
  - Pain [Not Recovered/Not Resolved]
  - Hypoacusis [Not Recovered/Not Resolved]
  - Haemorrhagic urticaria [Not Recovered/Not Resolved]
  - Purpura [Not Recovered/Not Resolved]
  - Urticaria [Not Recovered/Not Resolved]
  - Rash [Not Recovered/Not Resolved]
  - Pruritus generalised [Not Recovered/Not Resolved]
  - Burning sensation [Not Recovered/Not Resolved]
  - Feeling hot [Not Recovered/Not Resolved]
  - Skin haemorrhage [Not Recovered/Not Resolved]

NARRATIVE: CASE EVENT DATE: 20181018
